FAERS Safety Report 10307588 (Version 1)
Quarter: 2014Q3

REPORT INFORMATION
  Report Type: Spontaneous
  Country: US (occurrence: None)
  Receive Date: 20140714
  Receipt Date: 20140714
  Transmission Date: 20150326
  Serious: Yes (Other)
  Sender: FDA-Public Use
  Company Number: None

PATIENT
  Age: 69 Year
  Sex: Female
  Weight: 71.67 kg

DRUGS (1)
  1. MIRALAX [Suspect]
     Active Substance: POLYETHYLENE GLYCOL 3350
     Indication: COLONOSCOPY
     Dosage: 8 OZ.  MIXED WITH GATORADE  EVERY 10 TO 15 MIN --
     Dates: start: 20140706, end: 20140706

REACTIONS (3)
  - Loss of consciousness [None]
  - Haematemesis [None]
  - Convulsion [None]

NARRATIVE: CASE EVENT DATE: 20140706
